FAERS Safety Report 6769263 (Version 3)
Quarter: 2019Q1

REPORT INFORMATION
  Report Type: Spontaneous
  Country: GB (occurrence: GB)
  Receive Date: 20080924
  Receipt Date: 20190308
  Transmission Date: 20190418
  Serious: Yes (Other)
  Sender: FDA-Public Use
  Company Number: GB-PFIZER INC-2008078080

PATIENT
  Age: 34 Year
  Sex: Female
  Weight: 54.8 kg

DRUGS (1)
  1. CHAMPIX [Suspect]
     Active Substance: VARENICLINE TARTRATE
     Dosage: 1 MG, 2X/DAY
     Route: 048
     Dates: start: 20080524, end: 20080815

REACTIONS (3)
  - Tearfulness [Recovering/Resolving]
  - Depressed mood [Recovering/Resolving]
  - Agitated depression [Recovering/Resolving]

NARRATIVE: CASE EVENT DATE: 20080804
